FAERS Safety Report 14082596 (Version 1)
Quarter: 2017Q4

REPORT INFORMATION
  Report Type: Spontaneous
  Country: US (occurrence: US)
  Receive Date: 20171013
  Receipt Date: 20171013
  Transmission Date: 20180321
  Serious: No
  Sender: FDA-Public Use
  Company Number: US-CELGENEUS-USA-20171002419

PATIENT
  Age: 44 Year
  Sex: Female
  Weight: 123.4 kg

DRUGS (5)
  1. THALOMID [Suspect]
     Active Substance: THALIDOMIDE
     Indication: SYSTEMIC LUPUS ERYTHEMATOSUS
     Dosage: 50 MILLIGRAM
     Route: 048
     Dates: start: 20150813
  2. DOXEPIN [Concomitant]
     Active Substance: DOXEPIN
     Indication: PRURITUS
     Dosage: 25 MILLIGRAM
     Route: 048
     Dates: start: 20141013
  3. THALOMID [Suspect]
     Active Substance: THALIDOMIDE
     Indication: OFF LABEL USE
     Dosage: 100 MILLIGRAM
     Route: 048
     Dates: start: 201509
  4. THALOMID [Suspect]
     Active Substance: THALIDOMIDE
     Dosage: 100 MILLIGRAM
     Route: 048
     Dates: start: 201704, end: 201709
  5. THALOMID [Suspect]
     Active Substance: THALIDOMIDE
     Dosage: 50 MILLIGRAM
     Route: 048
     Dates: start: 201702

REACTIONS (6)
  - Constipation [Not Recovered/Not Resolved]
  - Abdominal pain lower [Recovered/Resolved]
  - Nausea [Recovered/Resolved]
  - Vomiting [Recovered/Resolved]
  - Chronic cutaneous lupus erythematosus [Recovered/Resolved]
  - Arthralgia [Recovered/Resolved]

NARRATIVE: CASE EVENT DATE: 20170911
